FAERS Safety Report 10922505 (Version 1)
Quarter: 2015Q1

REPORT INFORMATION
  Report Type: Spontaneous
  Country: NL (occurrence: None)
  Receive Date: 20150312
  Receipt Date: 20150312
  Transmission Date: 20150721
  Serious: Yes (Death)
  Sender: FDA-Public Use
  Company Number: 2015NL001710

PATIENT
  Sex: Male

DRUGS (1)
  1. ELIGARD [Suspect]
     Active Substance: LEUPROLIDE ACETATE
     Indication: PROSTATE CANCER METASTATIC
     Dosage: EVERY 6 MONTHS
     Route: 058
     Dates: start: 20140926

REACTIONS (1)
  - Cardiac failure [None]
